FAERS Safety Report 18571789 (Version 1)
Quarter: 2020Q4

REPORT INFORMATION
  Report Type: Spontaneous
  Country: US (occurrence: US)
  Receive Date: 20201202
  Receipt Date: 20201202
  Transmission Date: 20210114
  Serious: Yes (Other)
  Sender: FDA-Public Use
  Company Number: US-FARMAPROD-202011-1588

PATIENT
  Age: 71 Year
  Sex: Female
  Weight: 82.86 kg

DRUGS (14)
  1. GERITOL TONIC [Concomitant]
     Dosage: 2.5-18/15 LIQUID
  2. CALCIUM/VITAMINE D3 [Concomitant]
     Dosage: 500-1000 MG
  3. ZOLOFT [Concomitant]
     Active Substance: SERTRALINE HYDROCHLORIDE
  4. CLONIDINE. [Concomitant]
     Active Substance: CLONIDINE
     Dosage: 24H PATCH
  5. CELLCEPT [Concomitant]
     Active Substance: MYCOPHENOLATE MOFETIL\MYCOPHENOLATE MOFETIL HYDROCHLORIDE
  6. PREVACID [Concomitant]
     Active Substance: LANSOPRAZOLE
     Dosage: DELAY RELEASE CAPSULE
  7. TIMOLOL MALEATE. [Concomitant]
     Active Substance: TIMOLOL MALEATE
  8. NORVASC [Concomitant]
     Active Substance: AMLODIPINE BESYLATE
  9. CALCIUM/VITAMINE D3 [Concomitant]
     Dosage: 600-500 MG EXTENDED RELEASE TABLET
  10. IRON [Concomitant]
     Active Substance: IRON
     Dosage: 160 (50) MG EXTENDED RELEASE TABLET
  11. TURMERIC [Concomitant]
     Active Substance: HERBALS\TURMERIC
  12. OXERVATE [Suspect]
     Active Substance: CENEGERMIN-BKBJ
     Indication: NEUROTROPHIC KERATOPATHY
     Route: 047
     Dates: start: 20200803, end: 202010
  13. OXERVATE [Suspect]
     Active Substance: CENEGERMIN-BKBJ
     Route: 047
     Dates: start: 20201124
  14. PREDNISONE. [Concomitant]
     Active Substance: PREDNISONE
     Dosage: 10 MG TABLET IN A DOSE PACK

REACTIONS (1)
  - Eye operation [Unknown]

NARRATIVE: CASE EVENT DATE: 20201112
